FAERS Safety Report 12647690 (Version 1)
Quarter: 2016Q3

REPORT INFORMATION
  Report Type: Spontaneous
  Country: US (occurrence: None)
  Receive Date: 20160811
  Receipt Date: 20160811
  Transmission Date: 20161109
  Serious: Yes (Hospitalization)
  Sender: FDA-Public Use
  Company Number: None

PATIENT
  Age: 60 Year
  Sex: Female

DRUGS (24)
  1. ALENDRONATE [Concomitant]
     Active Substance: ALENDRONATE SODIUM
  2. TRAMADOL HCL [Concomitant]
     Active Substance: TRAMADOL HYDROCHLORIDE
  3. PHENYLPROPAN POWDER HCL [Concomitant]
  4. LEVOTHYROXIN [Concomitant]
     Active Substance: LEVOTHYROXINE
  5. FERROUS SULFATE. [Concomitant]
     Active Substance: FERROUS SULFATE
  6. CARVEDILOL. [Concomitant]
     Active Substance: CARVEDILOL
  7. PIOGLITAZONE. [Concomitant]
     Active Substance: PIOGLITAZONE
  8. NITROFURANTOIN. [Concomitant]
     Active Substance: NITROFURANTOIN
  9. LANTUS [Concomitant]
     Active Substance: INSULIN GLARGINE
  10. VITAMIN D [Concomitant]
     Active Substance: CHOLECALCIFEROL
  11. INSULIN [Concomitant]
     Active Substance: INSULIN NOS
  12. AMLODIPINE [Concomitant]
     Active Substance: AMLODIPINE BESYLATE
  13. POTASSIUM ACETATE. [Concomitant]
     Active Substance: POTASSIUM ACETATE
  14. TASIGNA [Suspect]
     Active Substance: NILOTINIB
     Indication: CHRONIC MYELOID LEUKAEMIA
     Route: 048
     Dates: start: 20130612
  15. FUROSEMIDE. [Concomitant]
     Active Substance: FUROSEMIDE
  16. PRAVASTATIN. [Concomitant]
     Active Substance: PRAVASTATIN
  17. MONTELUKAST [Concomitant]
     Active Substance: MONTELUKAST SODIUM
  18. HUMALOG [Concomitant]
     Active Substance: INSULIN LISPRO
  19. AMITRIPTYLINE [Concomitant]
     Active Substance: AMITRIPTYLINE
  20. LEVETIRACETA SOL [Concomitant]
  21. BENAZEPRIL [Concomitant]
     Active Substance: BENAZEPRIL HYDROCHLORIDE
  22. LOVENOX [Concomitant]
     Active Substance: ENOXAPARIN SODIUM
  23. NIASPAN [Concomitant]
     Active Substance: NIACIN
  24. DOCUSATE SODIUM. [Concomitant]
     Active Substance: DOCUSATE SODIUM

REACTIONS (2)
  - Therapy cessation [None]
  - Cardiac operation [None]

NARRATIVE: CASE EVENT DATE: 20160719
